FAERS Safety Report 4674216-3 (Version None)
Quarter: 2005Q2

REPORT INFORMATION
  Report Type: 
  Country: None (occurrence: None)
  Receive Date: 20050526
  Receipt Date: 20041214
  Transmission Date: 20051028
  Serious: Yes (Hospitalization)
  Sender: FDA-Public Use
  Company Number: 200511442JP

PATIENT
  Age: 69 Year
  Sex: Female
  Weight: 58.9 kg

DRUGS (9)
  1. ARAVA [Suspect]
     Indication: RHEUMATOID ARTHRITIS
     Route: 048
     Dates: start: 20040121, end: 20040123
  2. PREDONINE [Concomitant]
     Indication: RHEUMATOID ARTHRITIS
     Route: 048
  3. PREDNISOLONE [Concomitant]
     Indication: RHEUMATOID ARTHRITIS
     Route: 048
  4. LOXONIN [Concomitant]
     Indication: RHEUMATOID ARTHRITIS
     Route: 048
  5. TAGAMET [Concomitant]
     Indication: GASTRITIS
     Route: 048
  6. TAGAMET [Concomitant]
     Indication: PROPHYLAXIS
     Route: 048
  7. ZYLORIC [Concomitant]
     Indication: RENAL DISORDER
     Route: 048
  8. ONE-ALPHA [Concomitant]
     Indication: OSTEOPOROSIS
     Route: 048
  9. METHOTREXATE [Concomitant]
     Indication: RHEUMATOID ARTHRITIS
     Route: 048
     Dates: start: 19980420, end: 19980917

REACTIONS (2)
  - CARPAL TUNNEL SYNDROME [None]
  - GLUCOSE URINE PRESENT [None]
